FAERS Safety Report 17206033 (Version 1)
Quarter: 2019Q4

REPORT INFORMATION
  Report Type: Spontaneous
  Country: SE (occurrence: SE)
  Receive Date: 20191227
  Receipt Date: 20191227
  Transmission Date: 20200122
  Serious: Yes (Other)
  Sender: FDA-Public Use
  Company Number: SE-SA-2019SA334071

PATIENT
  Age: 76 Year
  Sex: Female

DRUGS (7)
  1. JARDIANCE [Concomitant]
     Active Substance: EMPAGLIFLOZIN
     Dosage: 10 MG
  2. TOUJEO [Concomitant]
     Active Substance: INSULIN GLARGINE
     Indication: DIABETES MELLITUS
     Dosage: 21 IU
  3. INSULIN LISPRO [Suspect]
     Active Substance: INSULIN LISPRO
     Dosage: UNK, TID (8 E IN THE MORNING, LOWERED TO 3 E LUNCH AND 4 E FOR DINNER)
  4. INSULIN LISPRO [Suspect]
     Active Substance: INSULIN LISPRO
     Dosage: UNK
  5. APIDRA [Concomitant]
     Active Substance: INSULIN GLULISINE
     Route: 065
  6. INSULIN LISPRO [Suspect]
     Active Substance: INSULIN LISPRO
     Indication: DIABETES MELLITUS
     Dosage: 10E AT BREAKFAST, 4 E TO LUNCH, 4 E FOR DINNER AND 2E LATER
     Route: 065
  7. JARDIANCE [Concomitant]
     Active Substance: EMPAGLIFLOZIN
     Dosage: 25 MG

REACTIONS (9)
  - Malaise [Unknown]
  - Weight increased [Unknown]
  - Injection site reaction [Unknown]
  - Tremor [Unknown]
  - Blood glucose decreased [Unknown]
  - Diabetic coma [Unknown]
  - Blood insulin abnormal [Unknown]
  - Cold sweat [Unknown]
  - Injection site bruising [Unknown]
